FAERS Safety Report 6882994-8 (Version None)
Quarter: 2010Q3

REPORT INFORMATION
  Report Type: 
  Country: None (occurrence: None)
  Receive Date: 20100727
  Receipt Date: 20100721
  Transmission Date: 20110219
  Serious: Yes (Hospitalization)
  Sender: FDA-Public Use
  Company Number: GB-AMGEN-KDC425894

PATIENT
  Sex: Male

DRUGS (6)
  1. VECTIBIX [Suspect]
     Indication: GASTROOESOPHAGEAL CANCER
     Dates: start: 20100706
  2. EPIRUBICIN [Suspect]
     Dates: start: 20100706
  3. OXALIPLATIN [Suspect]
     Dates: start: 20100706
  4. CAPECITABINE [Suspect]
     Dates: start: 20100706
  5. LANSOPRAZOLE [Concomitant]
  6. GAVISCON [Concomitant]

REACTIONS (2)
  - DIARRHOEA [None]
  - NEUTROPENIA [None]
